FAERS Safety Report 5736464-0 (Version None)
Quarter: 2008Q2

REPORT INFORMATION
  Report Type: 
  Country: None (occurrence: None)
  Receive Date: 20080513
  Receipt Date: 20080506
  Transmission Date: 20081010
  Serious: Yes (Other)
  Sender: FDA-Public Use
  Company Number: US-JNJFOC-20080306986

PATIENT
  Sex: Female
  Weight: 77.93 kg

DRUGS (1)
  1. REMICADE [Suspect]
     Indication: COLITIS ULCERATIVE
     Route: 042

REACTIONS (4)
  - INFUSION RELATED REACTION [None]
  - LUPUS-LIKE SYNDROME [None]
  - RASH [None]
  - URTICARIA [None]
